FAERS Safety Report 9315744 (Version 1)
Quarter: 2013Q2

REPORT INFORMATION
  Report Type: Report from Study
  Country: BR (occurrence: BR)
  Receive Date: 20130529
  Receipt Date: 20130529
  Transmission Date: 20140414
  Serious: Yes (Other)
  Sender: FDA-Public Use
  Company Number: BR-B.I. PHARMACEUTICALS,INC./RIDGEFIELD-2013-BI-13724GD

PATIENT
  Age: 79 Year
  Sex: Male

DRUGS (5)
  1. PRAMIPEXOLE [Suspect]
     Indication: PARKINSON^S DISEASE
     Dosage: 3 MG
  2. SERTRALINE [Suspect]
     Indication: PARKINSON^S DISEASE
     Dosage: 75 MG
  3. LEVODOPA BENSERAZIDE [Suspect]
     Indication: PARKINSON^S DISEASE
     Dosage: STRENGTH: LEVODOPA-BENSERAZIDE 200 MG/50 MG, 1/2  TABLET 5 TIMES/DAY
     Route: 048
  4. MADOPAR HBS [Suspect]
     Indication: PARKINSON^S DISEASE
     Dosage: STRENGTH: LEVODOPA-BENSERAZIDE 100 MG/25 MG
  5. RIVASTIGMINE [Suspect]
     Indication: PARKINSON^S DISEASE
     Dosage: 9.5 MG
     Route: 062

REACTIONS (3)
  - Jealous delusion [Unknown]
  - Hallucination, visual [Unknown]
  - Aggression [Unknown]
